FAERS Safety Report 7107806-9 (Version None)
Quarter: 2010Q4

REPORT INFORMATION
  Report Type: 
  Country: None (occurrence: None)
  Receive Date: 20101117
  Receipt Date: 20101105
  Transmission Date: 20110411
  Serious: No
  Sender: FDA-Public Use
  Company Number: PHHY2010US71483

PATIENT
  Sex: Male

DRUGS (3)
  1. TASIGNA [Suspect]
     Indication: ACUTE MYELOID LEUKAEMIA (IN REMISSION)
     Dosage: 400 MG, BID
     Route: 048
     Dates: start: 20100929, end: 20101001
  2. TASIGNA [Suspect]
     Indication: CHRONIC MYELOID LEUKAEMIA
  3. PROGRAF [Concomitant]
     Dosage: UNK

REACTIONS (1)
  - THERMAL BURN [None]
